FAERS Safety Report 10282041 (Version 4)
Quarter: 2014Q3

REPORT INFORMATION
  Report Type: Spontaneous
  Country: US (occurrence: US)
  Receive Date: 20140707
  Receipt Date: 20140821
  Transmission Date: 20150326
  Serious: Yes (Hospitalization, Other)
  Sender: FDA-Public Use
  Company Number: US-009507513-1203USA02003

PATIENT
  Sex: Female

DRUGS (3)
  1. FOSAMAX [Suspect]
     Active Substance: ALENDRONATE SODIUM
     Indication: OSTEOPOROSIS
     Dosage: UNK
     Route: 048
     Dates: start: 1999
  2. FOSAMAX [Suspect]
     Active Substance: ALENDRONATE SODIUM
     Dosage: 70 MG, UNK
     Route: 048
     Dates: end: 2011
  3. FOSAMAX PLUS D [Suspect]
     Active Substance: ALENDRONATE SODIUM\CHOLECALCIFEROL
     Indication: OSTEOPOROSIS
     Dosage: 70 MG, UNK
     Route: 048
     Dates: end: 2011

REACTIONS (13)
  - Ankle fracture [Unknown]
  - Low turnover osteopathy [Unknown]
  - Ankle fracture [Recovering/Resolving]
  - Joint dislocation [Recovering/Resolving]
  - Internal fixation of fracture [Unknown]
  - Ligament rupture [Recovering/Resolving]
  - Open reduction of fracture [Unknown]
  - Fall [Unknown]
  - Fibula fracture [Recovering/Resolving]
  - Intramedullary rod insertion [Unknown]
  - Foot fracture [Unknown]
  - Osteopenia [Unknown]
  - Femur fracture [Unknown]

NARRATIVE: CASE EVENT DATE: 2004
